FAERS Safety Report 14008777 (Version 1)
Quarter: 2017Q3

REPORT INFORMATION
  Report Type: Spontaneous
  Country: NL (occurrence: NL)
  Receive Date: 20170925
  Receipt Date: 20170925
  Transmission Date: 20171128
  Serious: Yes (Other)
  Sender: FDA-Public Use
  Company Number: NL-CELGENEUS-NLD-20170903449

PATIENT

DRUGS (1)
  1. ABRAXANE [Suspect]
     Active Substance: PACLITAXEL
     Indication: PANCREATIC CARCINOMA
     Route: 041

REACTIONS (24)
  - Immune system disorder [Unknown]
  - Cardiac disorder [Unknown]
  - Gastrointestinal disorder [Unknown]
  - Adverse event [Unknown]
  - Injury [Unknown]
  - Angiopathy [Unknown]
  - Lymphatic disorder [Unknown]
  - Pancreatic carcinoma [Unknown]
  - Mental disorder [Unknown]
  - Respiratory disorder [Unknown]
  - Procedural complication [Unknown]
  - Cholecystitis [Unknown]
  - Blood disorder [Unknown]
  - Eye disorder [Unknown]
  - Metabolic disorder [Unknown]
  - Poisoning [Unknown]
  - Bile duct stenosis [Unknown]
  - Liver disorder [Unknown]
  - Neoplasm [Unknown]
  - Biliary tract disorder [Unknown]
  - Haemoglobin decreased [Unknown]
  - Neutrophil count decreased [Unknown]
  - Nervous system disorder [Unknown]
  - Skin disorder [Unknown]
